FAERS Safety Report 18095729 (Version 1)
Quarter: 2020Q3

REPORT INFORMATION
  Report Type: Spontaneous
  Country: HU (occurrence: HU)
  Receive Date: 20200730
  Receipt Date: 20200730
  Transmission Date: 20201103
  Serious: Yes (Death, Other)
  Sender: FDA-Public Use
  Company Number: HU-SA-2020SA196205

PATIENT

DRUGS (1)
  1. OXALIPLATIN. [Suspect]
     Active Substance: OXALIPLATIN
     Indication: NEOADJUVANT THERAPY

REACTIONS (3)
  - Mesenteric vascular insufficiency [Fatal]
  - Liver disorder [Unknown]
  - Multiple organ dysfunction syndrome [Fatal]
